FAERS Safety Report 17915207 (Version 1)
Quarter: 2020Q3

REPORT INFORMATION
  Report Type: Spontaneous
  Country: PT (occurrence: PT)
  Receive Date: 20200618
  Receipt Date: 20200618
  Transmission Date: 20201105
  Serious: Yes (Other)
  Sender: FDA-Public Use
  Company Number: PT-BAUSCH-BL-2020-017248

PATIENT
  Age: 65 Year
  Sex: Female

DRUGS (5)
  1. ETORICOXIB. [Suspect]
     Active Substance: ETORICOXIB
     Indication: PRODUCT USED FOR UNKNOWN INDICATION
     Route: 065
  2. TELMISARTAN. [Suspect]
     Active Substance: TELMISARTAN
     Indication: ESSENTIAL HYPERTENSION
     Route: 065
  3. AMLODIPINE [Suspect]
     Active Substance: AMLODIPINE BESYLATE
     Indication: ESSENTIAL HYPERTENSION
     Route: 065
  4. PROPANOLOL [Concomitant]
     Active Substance: PROPRANOLOL HYDROCHLORIDE
     Indication: PRODUCT USED FOR UNKNOWN INDICATION
  5. DICLOFENAC [Suspect]
     Active Substance: DICLOFENAC
     Indication: PRODUCT USED FOR UNKNOWN INDICATION
     Dosage: UNKNOWN, AS NEEDED (PRN (SOS))
     Route: 065

REACTIONS (9)
  - Porphyrins stool increased [Unknown]
  - Acquired porphyria [Unknown]
  - Skin ulcer [Unknown]
  - Skin warm [Unknown]
  - Porphyrins urine increased [Unknown]
  - Porphyria non-acute [Unknown]
  - Pruritus [Unknown]
  - Blister [Unknown]
  - Skin hyperpigmentation [Unknown]
